FAERS Safety Report 9483367 (Version 2)
Quarter: 2013Q3

REPORT INFORMATION
  Report Type: Report from Study
  Country: CA (occurrence: CA)
  Receive Date: 20130828
  Receipt Date: 20130913
  Transmission Date: 20140515
  Serious: Yes (Other)
  Sender: FDA-Public Use
  Company Number: CA-UCBSA-095950

PATIENT
  Age: 57 Year
  Sex: Female

DRUGS (2)
  1. CIMZIA [Suspect]
     Indication: RHEUMATOID ARTHRITIS
     Dosage: DOSE: 400 MG, NORMAL LOADING DOSE. NO OF DOSES RECEIVED: 3
     Route: 058
     Dates: start: 20130807
  2. CIMZIA [Suspect]
     Indication: RHEUMATOID ARTHRITIS
     Dosage: DOSE:200 MG
     Route: 058
     Dates: start: 20130709, end: 2013

REACTIONS (1)
  - Rash generalised [Recovered/Resolved]
